FAERS Safety Report 4848372-8 (Version None)
Quarter: 2005Q4

REPORT INFORMATION
  Report Type: 
  Country: None (occurrence: None)
  Receive Date: 20051208
  Receipt Date: 20051130
  Transmission Date: 20060501
  Serious: Yes (Death, Hospitalization)
  Sender: FDA-Public Use
  Company Number: AU-GILEAD-2005-0008990

PATIENT
  Sex: Male

DRUGS (5)
  1. VIREAD [Suspect]
     Indication: HIV INFECTION
     Route: 048
  2. EMTRIVA [Suspect]
     Indication: HIV INFECTION
     Route: 048
  3. EFAVIRENZ [Concomitant]
     Indication: HIV INFECTION
  4. PENICILLIN [Concomitant]
  5. CELECOXIB [Concomitant]

REACTIONS (2)
  - HEPATITIS FULMINANT [None]
  - HEPATOTOXICITY [None]
